FAERS Safety Report 21075777 (Version 2)
Quarter: 2022Q3

REPORT INFORMATION
  Report Type: Spontaneous
  Country: US (occurrence: US)
  Receive Date: 20220713
  Receipt Date: 20220816
  Transmission Date: 20221026
  Serious: No
  Sender: FDA-Public Use
  Company Number: US-ALKERMES INC.-ALK-2022-003366

PATIENT
  Age: 29 Year
  Sex: Female

DRUGS (5)
  1. ARISTADA [Suspect]
     Active Substance: ARIPIPRAZOLE LAUROXIL
     Indication: Product use in unapproved indication
     Dosage: 882 MILLIGRAM, Q6WK
     Route: 030
     Dates: start: 20220614, end: 20220614
  2. ARISTADA [Suspect]
     Active Substance: ARIPIPRAZOLE LAUROXIL
     Dosage: 882 MILLIGRAM, Q6WK
     Route: 030
  3. ZOLOFT [Concomitant]
     Active Substance: SERTRALINE HYDROCHLORIDE
     Indication: Depression
     Dosage: 50 MILLIGRAM
     Route: 048
  4. ZOLOFT [Concomitant]
     Active Substance: SERTRALINE HYDROCHLORIDE
     Indication: Paranoia
     Dosage: 100 MILLIGRAM
     Route: 048
     Dates: start: 2014
  5. LAMICTAL [Concomitant]
     Active Substance: LAMOTRIGINE
     Indication: Product used for unknown indication
     Dosage: UNK
     Route: 065

REACTIONS (7)
  - Psychotic symptom [Not Recovered/Not Resolved]
  - Paranoia [Not Recovered/Not Resolved]
  - Dissociative disorder [Not Recovered/Not Resolved]
  - Depersonalisation/derealisation disorder [Not Recovered/Not Resolved]
  - Hypervigilance [Not Recovered/Not Resolved]
  - Fear-related avoidance of activities [Unknown]
  - Off label use [Unknown]

NARRATIVE: CASE EVENT DATE: 20220601
